FAERS Safety Report 6418996-5 (Version None)
Quarter: 2009Q4

REPORT INFORMATION
  Report Type: 
  Country: None (occurrence: None)
  Receive Date: 20091028
  Receipt Date: 20091028
  Transmission Date: 20100525
  Serious: Yes (Death, Hospitalization)
  Sender: FDA-Public Use
  Company Number: None

PATIENT
  Weight: 52.8894 kg

DRUGS (12)
  1. BEVACIZUMAB [Suspect]
     Indication: OESOPHAGEAL ADENOCARCINOMA METASTATIC
     Dosage: 7.5 MG/KG D1/22DAYCYCLE
     Dates: start: 20090609, end: 20090811
  2. OXALIPLATIN [Suspect]
     Indication: OESOPHAGEAL ADENOCARCINOMA METASTATIC
     Dosage: 75MG/M2
     Dates: start: 20090609, end: 20090811
  3. DOCETAXEL [Suspect]
     Indication: OESOPHAGEAL ADENOCARCINOMA METASTATIC
     Dosage: 70MG/M2 D1
     Dates: start: 20090609, end: 20090811
  4. EMLA [Concomitant]
  5. MEHACE [Concomitant]
  6. OMEPRAZOLE [Concomitant]
  7. ODANSETRON [Concomitant]
  8. POTASSIUM CHLORIDE [Concomitant]
  9. COMPAZINE [Concomitant]
  10. PHENERGAN HCL [Concomitant]
  11. SUCRALFATE [Concomitant]
  12. DULCOLAX [Concomitant]

REACTIONS (5)
  - CHEST PAIN [None]
  - DYSPNOEA [None]
  - MALIGNANT NEOPLASM PROGRESSION [None]
  - METASTATIC GASTRIC CANCER [None]
  - PLEURAL EFFUSION [None]
